FAERS Safety Report 5226404-5 (Version None)
Quarter: 2007Q1

REPORT INFORMATION
  Report Type: 
  Country: None (occurrence: None)
  Receive Date: 20061201
  Receipt Date: 20061023
  Transmission Date: 20070707
  Serious: No
  Sender: FDA-Public Use
  Company Number: US200610004155

PATIENT
  Age: 78 Year
  Sex: Female

DRUGS (15)
  1. CYMBALTA [Suspect]
     Indication: PAIN IN EXTREMITY
     Dosage: 30 MG, DAILY (1/D)
     Dates: start: 20061010
  2. COUMADIN [Concomitant]
  3. ALTACE [Concomitant]
  4. ZETIA [Concomitant]
  5. FUROSEMIDE [Concomitant]
  6. NADOLOL [Concomitant]
  7. ENTERIC ASPIRIN /USA/(ACETYLSALICYLIC ACID) [Concomitant]
  8. MEMANTINE HCL [Concomitant]
  9. VITAMIN B12 [Concomitant]
  10. VITAMINS, OTHER COMBINATIONS [Concomitant]
  11. NOVOLIN 70/30 [Concomitant]
  12. METOLAZONE [Concomitant]
  13. POTASSIUM CHLORIDE [Concomitant]
  14. SENOKOT [Concomitant]
  15. DULCOLAX [Concomitant]

REACTIONS (6)
  - ABDOMINAL PAIN UPPER [None]
  - CONSTIPATION [None]
  - FATIGUE [None]
  - NAUSEA [None]
  - SENSATION OF HEAVINESS [None]
  - VOMITING [None]
